FAERS Safety Report 5371311-0 (Version None)
Quarter: 2007Q2

REPORT INFORMATION
  Report Type: 
  Country: None (occurrence: None)
  Receive Date: 20070615
  Receipt Date: 20060628
  Transmission Date: 20071010
  Serious: Yes (Other)
  Sender: FDA-Public Use
  Company Number: 200615528US

PATIENT
  Age: 62 Year
  Sex: Female
  Weight: 98.63 kg

DRUGS (8)
  1. LANTUS [Suspect]
     Indication: DIABETES MELLITUS
     Dosage: QD;
     Dates: start: 20060625, end: 20060601
  2. LANTUS [Suspect]
     Indication: DIABETES MELLITUS
     Dosage: 15 + 4 U;
     Dates: start: 20060601
  3. NIFEDIPINE (PROCARDIA) [Concomitant]
  4. COREG [Concomitant]
  5. FEMARA [Concomitant]
  6. SYNTHROID [Concomitant]
  7. XANAX [Concomitant]
  8. PRILOSEC [Concomitant]

REACTIONS (1)
  - HYPERGLYCAEMIA [None]
